FAERS Safety Report 4447144-6 (Version None)
Quarter: 2004Q3

REPORT INFORMATION
  Report Type: 
  Country: None (occurrence: None)
  Receive Date: 20040908
  Receipt Date: 20040908
  Transmission Date: 20050211
  Serious: Yes (Disabling)
  Sender: FDA-Public Use
  Company Number: None

PATIENT
  Age: 37 Year
  Sex: Male

DRUGS (1)
  1. MEFLOQUINE HCL [Suspect]
     Indication: MALARIA PROPHYLAXIS
     Dosage: PO 250 MG QWK
     Route: 048
     Dates: start: 20030301

REACTIONS (3)
  - FALL [None]
  - HALLUCINATION [None]
  - SOCIAL AVOIDANT BEHAVIOUR [None]
